FAERS Safety Report 5035583-4 (Version None)
Quarter: 2006Q2

REPORT INFORMATION
  Report Type: 
  Country: None (occurrence: None)
  Receive Date: 20060526
  Receipt Date: 20060403
  Transmission Date: 20061013
  Serious: Yes (Hospitalization)
  Sender: FDA-Public Use
  Company Number: FABR-11463

PATIENT
  Age: 15 Year
  Sex: Male
  Weight: 108.4097 kg

DRUGS (4)
  1. FABRAZYME [Suspect]
     Indication: FABRY'S DISEASE
     Dosage: 90 MG Q2WKS IV
     Route: 042
     Dates: start: 20040913
  2. FABRAZYME [Suspect]
  3. BENADRYL [Concomitant]
  4. ACETAMINOPHEN [Concomitant]

REACTIONS (2)
  - BRONCHITIS [None]
  - VOMITING [None]
